FAERS Safety Report 7318667-7 (Version None)
Quarter: 2011Q1

REPORT INFORMATION
  Report Type: 
  Country: None (occurrence: None)
  Receive Date: 20110228
  Receipt Date: 20110214
  Transmission Date: 20110831
  Serious: Yes (Hospitalization, Other)
  Sender: FDA-Public Use
  Company Number: FR-RANBAXY-2011RR-41185

PATIENT
  Age: 76 Year
  Sex: Male

DRUGS (28)
  1. VANCOMYCINE [Concomitant]
     Dosage: UNK
     Dates: start: 20110105, end: 20110111
  2. PANTOPRAZOLE [Concomitant]
     Dosage: UNK
     Dates: start: 20110104
  3. METOPROLOL SUCCINATE [Concomitant]
  4. TAHOR [Concomitant]
  5. ALLOPURINOL [Concomitant]
  6. LASIX [Concomitant]
     Dosage: UNK
     Dates: start: 20110104
  7. TAVANIC [Suspect]
     Indication: LUNG DISORDER
     Dosage: 500 MG, BID
     Route: 048
     Dates: start: 20110106
  8. TEVETEN [Concomitant]
  9. HEXAQUINE [Concomitant]
  10. HYDROCORTISONE [Concomitant]
     Dosage: UNK
     Dates: start: 20110101
  11. UMULINE RAPIDE [Concomitant]
     Dosage: UNK
     Dates: start: 20110101
  12. DOBUTAMINE HCL [Concomitant]
     Dosage: UNK
     Dates: start: 20110101
  13. PARACETAMOL [Suspect]
     Indication: ANALGESIC THERAPY
     Dosage: 4 G, UNK
     Route: 065
     Dates: start: 20110106, end: 20110111
  14. KARDEGIC [Concomitant]
  15. MORPHINE [Concomitant]
     Dosage: UNK
     Dates: start: 20110104
  16. HEPARIN [Concomitant]
     Dosage: UNK
     Dates: start: 20110101
  17. LIDOCAINE [Concomitant]
     Dosage: UNK
     Dates: start: 20110101
  18. METFORMIN HYDROCHLORIDE/PIOGLITAZONE HYDROCHLORIDE [Concomitant]
  19. ROSUVASTATIN [Concomitant]
     Dosage: UNK
     Dates: start: 20110109
  20. ASPEGIC 325 [Concomitant]
     Dosage: UNK
     Dates: start: 20110104
  21. TAVANIC [Suspect]
     Indication: PULMONARY SEPSIS
     Dosage: UNK
     Route: 048
     Dates: start: 20110101
  22. PREVISCAN [Concomitant]
  23. VITAMIN K TAB [Concomitant]
     Dosage: UNK
     Dates: start: 20110101
  24. MIDAZOLAM HCL [Concomitant]
     Dosage: UNK
     Dates: start: 20110101
  25. NICARDIPINE HYDROCHLORIDE [Concomitant]
     Dosage: UNK
     Dates: start: 20110101
  26. CLAFORAN [Suspect]
     Indication: PULMONARY SEPSIS
     Dosage: 2 G, TID
     Route: 042
     Dates: start: 20110105, end: 20110111
  27. NORADRENALINE [Concomitant]
     Dosage: UNK
     Dates: start: 20110101
  28. ACLOTINE [Concomitant]
     Dosage: UNK
     Dates: start: 20110101

REACTIONS (5)
  - ASPARTATE AMINOTRANSFERASE INCREASED [None]
  - ALANINE AMINOTRANSFERASE INCREASED [None]
  - CYTOLYTIC HEPATITIS [None]
  - BLOOD BILIRUBIN INCREASED [None]
  - INCORRECT DOSE ADMINISTERED [None]
